FAERS Safety Report 20648937 (Version 1)
Quarter: 2022Q1

REPORT INFORMATION
  Report Type: Spontaneous
  Country: US (occurrence: None)
  Receive Date: 20220329
  Receipt Date: 20220329
  Transmission Date: 20220423
  Serious: Yes (Disabling)
  Sender: FDA-Public Use
  Company Number: None

PATIENT
  Age: 43 Year
  Sex: Female

DRUGS (1)
  1. SUBOXONE [Suspect]
     Active Substance: BUPRENORPHINE HYDROCHLORIDE\NALOXONE HYDROCHLORIDE
     Indication: Drug use disorder
     Dosage: OTHER QUANTITY : 1 1 STRIP/PILL;?FREQUENCY : TWICE A DAY;?
     Route: 060
     Dates: start: 20080701, end: 20170101

REACTIONS (2)
  - Tooth loss [None]
  - Tooth disorder [None]

NARRATIVE: CASE EVENT DATE: 20181001
